FAERS Safety Report 10263118 (Version 2)
Quarter: 2014Q2

REPORT INFORMATION
  Report Type: Report from Study
  Country: US (occurrence: US)
  Receive Date: 20140626
  Receipt Date: 20140626
  Transmission Date: 20141212
  Serious: Yes (Death)
  Sender: FDA-Public Use
  Company Number: US-MYLANLABS-2014S1002050

PATIENT
  Age: 55 Year
  Sex: Male

DRUGS (10)
  1. CLOZAPINE TABLETS [Suspect]
     Route: 048
  2. CLOZAPINE TABLETS [Suspect]
     Route: 048
  3. GABAPENTIN [Concomitant]
     Route: 048
  4. SYNTHROID [Concomitant]
     Route: 048
  5. ZOLOFT [Concomitant]
     Route: 048
  6. METFORMIN [Concomitant]
     Route: 048
  7. PEPCID [Concomitant]
     Route: 048
  8. DEXILANT [Concomitant]
     Route: 048
  9. LIALDA [Concomitant]
  10. LANTUS [Concomitant]
     Route: 058

REACTIONS (1)
  - Death [Fatal]
